FAERS Safety Report 11292079 (Version 1)
Quarter: 2015Q3

REPORT INFORMATION
  Report Type: Spontaneous
  Country: US (occurrence: None)
  Receive Date: 20150721
  Receipt Date: 20150721
  Transmission Date: 20151125
  Serious: No
  Sender: FDA-Public Use
  Company Number: None

PATIENT
  Age: 61 Year
  Sex: Female
  Weight: 77.11 kg

DRUGS (9)
  1. CALCIUM [Concomitant]
     Active Substance: CALCIUM
  2. XARELTO [Suspect]
     Active Substance: RIVAROXABAN
     Indication: THROMBOSIS PROPHYLAXIS
     Dosage: 1 PILL
     Route: 048
     Dates: start: 20140104, end: 20140203
  3. CRESTOR [Concomitant]
     Active Substance: ROSUVASTATIN CALCIUM
  4. D3 [Concomitant]
     Active Substance: 25-HYDROXYCHOLECALCIFEROL, 5-TRANS-
  5. MULTIPLE VITAMIN [Concomitant]
     Active Substance: VITAMINS
  6. LOSARTAN. [Concomitant]
     Active Substance: LOSARTAN
  7. OXYBUTANIN [Concomitant]
  8. BIOTIN [Concomitant]
     Active Substance: BIOTIN
  9. FISH OIL [Concomitant]
     Active Substance: FISH OIL

REACTIONS (1)
  - Hypertonic bladder [None]

NARRATIVE: CASE EVENT DATE: 20140201
